FAERS Safety Report 4820052-4 (Version None)
Quarter: 2005Q4

REPORT INFORMATION
  Report Type: 
  Country: None (occurrence: None)
  Receive Date: 20051031
  Receipt Date: 20031219
  Transmission Date: 20060501
  Serious: Yes (Other)
  Sender: FDA-Public Use
  Company Number: 354699

PATIENT
  Age: 25 Year
  Sex: Female

DRUGS (6)
  1. FORTOVASE [Suspect]
     Indication: HIV INFECTION
     Dosage: 800 MG DAILY ORAL
     Route: 048
     Dates: start: 20000907, end: 20001028
  2. ZIDOVUDINE [Concomitant]
  3. LAMIVUDINE [Concomitant]
  4. RITONAVIR [Concomitant]
  5. STAVUDINE [Concomitant]
  6. NELFINAVIR [Concomitant]

REACTIONS (3)
  - ALANINE AMINOTRANSFERASE INCREASED [None]
  - ASPARTATE AMINOTRANSFERASE INCREASED [None]
  - BLOOD ALKALINE PHOSPHATASE INCREASED [None]
